FAERS Safety Report 12661707 (Version 1)
Quarter: 2016Q3

REPORT INFORMATION
  Report Type: Spontaneous
  Country: US (occurrence: US)
  Receive Date: 20160817
  Receipt Date: 20160817
  Transmission Date: 20161109
  Serious: Yes (Hospitalization, Other)
  Sender: FDA-Public Use
  Company Number: US-MYLANLABS-2016M1034646

PATIENT

DRUGS (13)
  1. IMBRUVICA [Suspect]
     Active Substance: IBRUTINIB
     Dosage: 140 MG, TID
     Route: 048
     Dates: start: 20160219
  2. CARTIA XT [Concomitant]
     Active Substance: DILTIAZEM HYDROCHLORIDE
     Dosage: UNK
     Dates: start: 20151014
  3. FUROSEMIDE. [Concomitant]
     Active Substance: FUROSEMIDE
     Dosage: UNK
     Dates: start: 20160425
  4. ALPRAZOLAM. [Concomitant]
     Active Substance: ALPRAZOLAM
     Dosage: UNK
     Dates: start: 20150110
  5. PANTOPRAZOLE SODIUM SESQUIHYDRATE [Concomitant]
     Active Substance: PANTOPRAZOLE SODIUM
     Dosage: UNK
     Dates: start: 20150107
  6. JAKAFI [Suspect]
     Active Substance: RUXOLITINIB
     Dosage: 10MG
     Route: 048
     Dates: start: 201511
  7. CARDIZEM [Concomitant]
     Active Substance: DILTIAZEM HYDROCHLORIDE
     Dosage: UNK MG, UNK
  8. FLOMAX [Concomitant]
     Active Substance: TAMSULOSIN HYDROCHLORIDE
     Dosage: UNK
     Dates: start: 20151013
  9. LEVOFLOXACIN. [Concomitant]
     Active Substance: LEVOFLOXACIN
     Dosage: UNK
     Dates: start: 20160414
  10. TRAMADOL HYDROCHLORIDE. [Concomitant]
     Active Substance: TRAMADOL HYDROCHLORIDE
     Dosage: UNK
     Dates: start: 20160425
  11. INDOMETACIN [Suspect]
     Active Substance: INDOMETHACIN
     Indication: GOUT
     Dosage: UNK
  12. ATROPINE SULFATE W/DIPHENHYDRAMINE HYDROCHLOR [Concomitant]
     Dosage: 2.5-0.25MG
     Dates: start: 20160318
  13. JAKAFI [Suspect]
     Active Substance: RUXOLITINIB
     Indication: MYELOFIBROSIS
     Dosage: 15 MG, BID
     Route: 048
     Dates: start: 201412, end: 201511

REACTIONS (19)
  - Thrombocytopenia [Recovering/Resolving]
  - Gout [Unknown]
  - Oedema [Not Recovered/Not Resolved]
  - Peripheral swelling [Unknown]
  - Gastrointestinal haemorrhage [Unknown]
  - Chest pain [Recovered/Resolved]
  - White blood cell count increased [Unknown]
  - Iron deficiency anaemia [Unknown]
  - Pain in extremity [Unknown]
  - Dyspnoea [Recovered/Resolved]
  - Lymphadenopathy [Unknown]
  - Haemoglobin decreased [Unknown]
  - Fatigue [Unknown]
  - Blood uric acid increased [Unknown]
  - Prostatic acid phosphatase increased [Unknown]
  - Diarrhoea [Unknown]
  - Night sweats [Unknown]
  - Oedema peripheral [Not Recovered/Not Resolved]
  - Platelet count decreased [Recovering/Resolving]

NARRATIVE: CASE EVENT DATE: 2015
